FAERS Safety Report 19374060 (Version 3)
Quarter: 2022Q1

REPORT INFORMATION
  Report Type: Spontaneous
  Country: US (occurrence: US)
  Receive Date: 20210603
  Receipt Date: 20220107
  Transmission Date: 20220424
  Serious: Yes (Other)
  Sender: FDA-Public Use
  Company Number: US-GILEAD-2021-0534093

PATIENT
  Age: 48 Year
  Sex: Male
  Weight: 76.19 kg

DRUGS (56)
  1. TRUVADA [Suspect]
     Active Substance: EMTRICITABINE\TENOFOVIR DISOPROXIL FUMARATE
     Indication: HIV infection
     Dosage: UNK
     Route: 048
     Dates: start: 20091103, end: 20120306
  2. TRUVADA [Suspect]
     Active Substance: EMTRICITABINE\TENOFOVIR DISOPROXIL FUMARATE
     Dosage: UNK
     Route: 048
     Dates: start: 20120430, end: 201704
  3. DESCOVY [Concomitant]
     Active Substance: EMTRICITABINE\TENOFOVIR ALAFENAMIDE FUMARATE
  4. EVOTAZ [Concomitant]
     Active Substance: ATAZANAVIR SULFATE\COBICISTAT
  5. AZELASTINE [Concomitant]
     Active Substance: AZELASTINE
  6. AZITHROMYCIN [Concomitant]
     Active Substance: AZITHROMYCIN
  7. BACITRACIN [Concomitant]
     Active Substance: BACITRACIN
  8. BANOPHEN [Concomitant]
     Active Substance: DIPHENHYDRAMINE HYDROCHLORIDE
  9. BENADRYL [Concomitant]
     Active Substance: DIPHENHYDRAMINE HYDROCHLORIDE
  10. CEFADROXIL [Concomitant]
     Active Substance: CEFADROXIL
  11. CETIRIZINE [Concomitant]
     Active Substance: CETIRIZINE HYDROCHLORIDE
  12. CITALOPRAM HYDROBROMIDE [Concomitant]
     Active Substance: CITALOPRAM HYDROBROMIDE
  13. CLOTRIMAZOLE [Concomitant]
     Active Substance: CLOTRIMAZOLE
  14. CONDYLOX [Concomitant]
     Active Substance: PODOFILOX
  15. CYCLOBENZAPRINE [Concomitant]
     Active Substance: CYCLOBENZAPRINE
  16. DIPHENHYDRAMINE [Concomitant]
     Active Substance: DIPHENHYDRAMINE
  17. DIVALPROEX SODIUM [Concomitant]
     Active Substance: DIVALPROEX SODIUM
  18. DOCUSIL [Concomitant]
  19. DOXYCYCLINE [Concomitant]
     Active Substance: DOXYCYCLINE
  20. GABAPENTIN [Concomitant]
     Active Substance: GABAPENTIN
  21. GUAIFENESIN [Concomitant]
     Active Substance: GUAIFENESIN
  22. IBUPROFEN [Concomitant]
     Active Substance: IBUPROFEN
  23. IMIQUIMOD [Concomitant]
     Active Substance: IMIQUIMOD
  24. LACTULOSE [Concomitant]
     Active Substance: LACTULOSE
  25. LEVOCETIRIZINE [Concomitant]
     Active Substance: LEVOCETIRIZINE
  26. LOPERAMIDE [Concomitant]
     Active Substance: LOPERAMIDE
  27. LORATADINE [Concomitant]
     Active Substance: LORATADINE
  28. LORAZEPAM [Concomitant]
     Active Substance: LORAZEPAM
  29. NAPROXEN [Concomitant]
     Active Substance: NAPROXEN
  30. NASONEX [Concomitant]
     Active Substance: MOMETASONE FUROATE
  31. NORTRIPTYLINE [Concomitant]
     Active Substance: NORTRIPTYLINE
  32. NORVIR [Concomitant]
     Active Substance: RITONAVIR
  33. OLANZAPINE [Concomitant]
     Active Substance: OLANZAPINE
  34. OLOPATADINE [Concomitant]
     Active Substance: OLOPATADINE
  35. ONDANSETRON [Concomitant]
     Active Substance: ONDANSETRON
  36. OXYCODONE [Concomitant]
     Active Substance: OXYCODONE
  37. OXYMETAZOLINE [Concomitant]
     Active Substance: OXYMETAZOLINE
  38. PENICILLIN [Concomitant]
     Active Substance: PENICILLIN
  39. PROMETHAZINE [Concomitant]
     Active Substance: PROMETHAZINE HYDROCHLORIDE
  40. HIGH DENSITY POLYETHYLENE [Concomitant]
     Active Substance: HIGH DENSITY POLYETHYLENE
  41. PROPRANOLOL [Concomitant]
     Active Substance: PROPRANOLOL HYDROCHLORIDE
  42. PSEUDOEPHEDRINE [Concomitant]
     Active Substance: PSEUDOEPHEDRINE
  43. REYATAZ [Concomitant]
     Active Substance: ATAZANAVIR SULFATE
  44. RISPERIDONE [Concomitant]
     Active Substance: RISPERIDONE
  45. SERTRALINE [Concomitant]
     Active Substance: SERTRALINE HYDROCHLORIDE
  46. SILDENAFIL CITRATE [Concomitant]
     Active Substance: SILDENAFIL CITRATE
  47. SILTUSSIN [GUAIFENESIN] [Concomitant]
  48. SILVER SULFADIAZINE [Concomitant]
     Active Substance: SILVER SULFADIAZINE
  49. TACTINAL [Concomitant]
  50. TAMIFLU [Concomitant]
     Active Substance: OSELTAMIVIR PHOSPHATE
  51. THERA-M [Concomitant]
  52. TRAMADOL [Concomitant]
     Active Substance: TRAMADOL
  53. TRAZODONE [Concomitant]
     Active Substance: TRAZODONE HYDROCHLORIDE
  54. VALACYCLOVIR [Concomitant]
     Active Substance: VALACYCLOVIR HYDROCHLORIDE
  55. VALTREX [Concomitant]
     Active Substance: VALACYCLOVIR HYDROCHLORIDE
  56. VITAMIN C [Concomitant]
     Active Substance: ASCORBIC ACID

REACTIONS (10)
  - Bipolar disorder [Not Recovered/Not Resolved]
  - Osteopenia [Not Recovered/Not Resolved]
  - Emotional distress [Not Recovered/Not Resolved]
  - Anhedonia [Not Recovered/Not Resolved]
  - Pain [Not Recovered/Not Resolved]
  - Anxiety [Not Recovered/Not Resolved]
  - Back pain [Unknown]
  - Tooth loss [Unknown]
  - Arthritis [Unknown]
  - General physical health deterioration [Not Recovered/Not Resolved]

NARRATIVE: CASE EVENT DATE: 20190627
